FAERS Safety Report 5493099-5 (Version None)
Quarter: 2007Q4

REPORT INFORMATION
  Report Type: 
  Country: None (occurrence: None)
  Receive Date: 20071018
  Receipt Date: 20071008
  Transmission Date: 20080405
  Serious: Yes (Hospitalization)
  Sender: FDA-Public Use
  Company Number: 13932645

PATIENT
  Age: 61 Year
  Sex: Male

DRUGS (6)
  1. REVIA [Suspect]
     Dosage: 50 MILLIGRAM 1 DAY
     Dates: start: 20070717
  2. DURAGESIC-100 [Suspect]
     Indication: SCIATICA
     Dosage: 75 MICROGRAM 1/3 DAY TD
     Route: 062
  3. AOTAL (ACAMPROSATE) [Concomitant]
  4. VITAMIN B1 + B6 (THIAMINE + PYRIDOXINE) [Concomitant]
  5. NICOBION (NICOTINAMIDE) [Concomitant]
  6. TRIZIVIR [Concomitant]

REACTIONS (7)
  - ABNORMAL BEHAVIOUR [None]
  - AGITATION [None]
  - DISORIENTATION [None]
  - DRUG INTERACTION [None]
  - HOT FLUSH [None]
  - MUSCLE SPASMS [None]
  - TREMOR [None]
